FAERS Safety Report 17189815 (Version 17)
Quarter: 2023Q4

REPORT INFORMATION
  Report Type: Other
  Country: DE (occurrence: None)
  Receive Date: 20191223
  Receipt Date: 20231110
  Transmission Date: 20240110
  Serious: Yes (Hospitalization, Other)
  Sender: FDA-Public Use
  Company Number: DE-ROCHE-2150768

PATIENT
  Age: 39 Year
  Sex: Female
  Weight: 65 kg

DRUGS (14)
  1. OCREVUS [Suspect]
     Active Substance: OCRELIZUMAB
     Indication: Relapsing-remitting multiple sclerosis
     Dosage: SUBSEQUENT DOSE ON 19/JUN/2018
     Route: 042
     Dates: start: 20180605, end: 20180605
  2. OCREVUS [Suspect]
     Active Substance: OCRELIZUMAB
     Dosage: MAINTENANCE DOSE?LAST DOSE ON 02/2022
     Route: 042
     Dates: start: 20181211
  3. OCREVUS [Suspect]
     Active Substance: OCRELIZUMAB
     Route: 042
     Dates: start: 20191217
  4. OCREVUS [Suspect]
     Active Substance: OCRELIZUMAB
     Route: 042
  5. CLEMASTINE FUMARATE [Suspect]
     Active Substance: CLEMASTINE FUMARATE
     Indication: Premedication
     Route: 042
  6. PANTOPRAZOLE SODIUM [Concomitant]
     Active Substance: PANTOPRAZOLE SODIUM
     Indication: Premedication
     Route: 065
  7. METAMIZOLE [Concomitant]
     Active Substance: METAMIZOLE
     Route: 042
  8. DESOGESTREL\ETHINYL ESTRADIOL [Concomitant]
     Active Substance: DESOGESTREL\ETHINYL ESTRADIOL
     Indication: Contraception
     Route: 048
     Dates: start: 1993
  9. RANITIDINE HYDROCHLORIDE [Concomitant]
     Active Substance: RANITIDINE HYDROCHLORIDE
     Indication: Premedication
     Route: 042
  10. PREDNISOLONE [Concomitant]
     Active Substance: PREDNISOLONE
     Indication: Premedication
     Route: 042
  11. AMOXICILLIN [Concomitant]
     Active Substance: AMOXICILLIN
     Route: 048
     Dates: start: 20191201, end: 20191204
  12. AMOXICILLIN [Concomitant]
     Active Substance: AMOXICILLIN
     Route: 048
     Dates: start: 20191015
  13. DIETARY SUPPLEMENT\HERBALS [Concomitant]
     Active Substance: DIETARY SUPPLEMENT\HERBALS
  14. COMIRNATY (TOZINAMERAN) [Concomitant]
     Active Substance: TOZINAMERAN
     Dates: start: 20210630

REACTIONS (21)
  - Atypical pneumonia [Recovering/Resolving]
  - Tooth injury [Not Recovered/Not Resolved]
  - Teeth brittle [Recovered/Resolved]
  - Headache [Recovered/Resolved]
  - Fatigue [Recovered/Resolved]
  - Hepatic enzyme increased [Recovered/Resolved]
  - Heart rate increased [Recovered/Resolved]
  - Blood iron decreased [Recovered/Resolved]
  - Vitamin D deficiency [Recovered/Resolved]
  - Hepatic cyst [Not Recovered/Not Resolved]
  - Eyelid ptosis [Recovered/Resolved]
  - Pulpitis dental [Unknown]
  - Chronic sinusitis [Recovering/Resolving]
  - Toothache [Recovered/Resolved]
  - Inappropriate schedule of product administration [Unknown]
  - Fatigue [Recovered/Resolved]
  - COVID-19 [Recovered/Resolved]
  - Lower respiratory tract congestion [Recovered/Resolved]
  - Ear infection [Recovered/Resolved]
  - Body temperature increased [Not Recovered/Not Resolved]
  - Jaw cyst [Recovered/Resolved]

NARRATIVE: CASE EVENT DATE: 20180605
